FAERS Safety Report 4437681-2 (Version None)
Quarter: 2004Q3

REPORT INFORMATION
  Report Type: 
  Country: None (occurrence: None)
  Receive Date: 20040831
  Receipt Date: 20031126
  Transmission Date: 20050211
  Serious: No
  Sender: FDA-Public Use
  Company Number: 14742

PATIENT
  Age: 85 Year
  Sex: Female

DRUGS (4)
  1. ZOVIRAX [Suspect]
     Dosage: 4APP PER DAY
     Route: 061
     Dates: start: 20031119
  2. FOSAMAX [Concomitant]
     Dosage: 70MG WEEKLY
     Route: 065
  3. CALCIUM [Concomitant]
  4. MULTIVITAMIN [Concomitant]

REACTIONS (4)
  - DRUG INEFFECTIVE [None]
  - DRY SKIN [None]
  - HAEMORRHAGE [None]
  - LIP HAEMORRHAGE [None]
